FAERS Safety Report 7584530-X (Version None)
Quarter: 2011Q2

REPORT INFORMATION
  Report Type: 
  Country: None (occurrence: None)
  Receive Date: 20110630
  Receipt Date: 20110628
  Transmission Date: 20111010
  Serious: Yes (Life-Threatening)
  Sender: FDA-Public Use
  Company Number: FR-PFIZER INC-2011074746

PATIENT
  Age: 27 Year
  Sex: Male

DRUGS (5)
  1. VANCOMYCIN [Suspect]
     Dosage: 3.5 MG, 1X/DAY
     Route: 042
     Dates: start: 20110208, end: 20110210
  2. PIPERACILLIN AND TAZOBACTAM [Suspect]
     Dosage: 4 G, 3X/DAY
     Route: 042
     Dates: start: 20110203, end: 20110215
  3. IOHEXOL [Suspect]
     Dosage: 90 ML, SINGLE
     Route: 042
     Dates: start: 20110208, end: 20110208
  4. VISIPAQUE [Suspect]
     Dosage: UNK ML, SINGLE
     Route: 013
     Dates: start: 20110209, end: 20110209
  5. VANCOMYCIN [Suspect]
     Dosage: 2 G, 1X/DAY
     Route: 042
     Dates: start: 20110203, end: 20110207

REACTIONS (3)
  - RENAL FAILURE ACUTE [None]
  - RENAL FAILURE [None]
  - ANURIA [None]
